FAERS Safety Report 9366330 (Version 1)
Quarter: 2013Q2

REPORT INFORMATION
  Report Type: Spontaneous
  Country: US (occurrence: US)
  Receive Date: 20130625
  Receipt Date: 20130625
  Transmission Date: 20140414
  Serious: No
  Sender: FDA-Public Use
  Company Number: US-GLAXOSMITHKLINE-A0998023A

PATIENT
  Age: 75 Year
  Sex: Male

DRUGS (6)
  1. VERAMYST [Suspect]
     Indication: RHINITIS
     Dosage: 2SPR PER DAY
     Route: 045
  2. CARBAMAZEPINE [Concomitant]
  3. LOSARTAN [Concomitant]
  4. ALEVE [Concomitant]
  5. METAMUCIL [Concomitant]
  6. BICALUTAMIDE [Concomitant]

REACTIONS (4)
  - Rhinorrhoea [Recovered/Resolved]
  - Sleep disorder [Not Recovered/Not Resolved]
  - Insomnia [Not Recovered/Not Resolved]
  - Discomfort [Not Recovered/Not Resolved]
